FAERS Safety Report 21489616 (Version 4)
Quarter: 2023Q2

REPORT INFORMATION
  Report Type: Report from Study
  Country: PA (occurrence: PA)
  Receive Date: 20221021
  Receipt Date: 20230623
  Transmission Date: 20230721
  Serious: Yes (Other)
  Sender: FDA-Public Use
  Company Number: PA-NOVARTISPH-NVSC2022PA230640

PATIENT
  Age: 41 Year
  Sex: Female

DRUGS (3)
  1. KISQALI [Suspect]
     Active Substance: RIBOCICLIB
     Indication: Breast cancer metastatic
     Dosage: 600 MG, QD
     Route: 048
     Dates: start: 202206
  2. ANASTROZOLE [Suspect]
     Active Substance: ANASTROZOLE
     Indication: Product used for unknown indication
     Dosage: 3 DOSAGE FORM
     Route: 065
  3. ANASTROZOLE [Suspect]
     Active Substance: ANASTROZOLE
     Dosage: UNK
     Route: 065

REACTIONS (13)
  - Metastases to liver [Unknown]
  - Metastasis [Unknown]
  - Hypoaesthesia [Unknown]
  - Heat illness [Unknown]
  - Eating disorder [Unknown]
  - Muscular weakness [Unknown]
  - Limb discomfort [Unknown]
  - Bone disorder [Unknown]
  - Hepatic lesion [Recovered/Resolved]
  - Hepatic mass [Recovering/Resolving]
  - Pain in extremity [Unknown]
  - Nausea [Unknown]
  - Skin discolouration [Not Recovered/Not Resolved]

NARRATIVE: CASE EVENT DATE: 20220601
